FAERS Safety Report 10588189 (Version 1)
Quarter: 2014Q4

REPORT INFORMATION
  Report Type: Spontaneous
  Country: ES (occurrence: ES)
  Receive Date: 20141117
  Receipt Date: 20141117
  Transmission Date: 20150529
  Serious: Yes (Death, Hospitalization)
  Sender: FDA-Public Use
  Company Number: ES-BAXTER-2014BAX066803

PATIENT
  Age: 77 Year
  Sex: Male
  Weight: 70 kg

DRUGS (1)
  1. GENOXAL [Suspect]
     Active Substance: CYCLOPHOSPHAMIDE
     Indication: PLASMA CELL MYELOMA
     Route: 065
     Dates: start: 20140211, end: 20140627

REACTIONS (8)
  - General physical health deterioration [Unknown]
  - Mouth haemorrhage [Unknown]
  - Febrile neutropenia [Fatal]
  - Renal failure [Unknown]
  - Joint effusion [Unknown]
  - Disorientation [Unknown]
  - Pancytopenia [Unknown]
  - Cardio-respiratory arrest [Fatal]

NARRATIVE: CASE EVENT DATE: 20140821
